FAERS Safety Report 11678994 (Version 1)
Quarter: 2015Q4

REPORT INFORMATION
  Report Type: Spontaneous
  Country: US (occurrence: US)
  Receive Date: 20151027
  Receipt Date: 20151027
  Transmission Date: 20160304
  Serious: No
  Sender: FDA-Public Use
  Company Number: US-ELI_LILLY_AND_COMPANY-US201009007004

PATIENT
  Age: 70 Year
  Sex: Female

DRUGS (1)
  1. FORTEO [Suspect]
     Active Substance: TERIPARATIDE
     Indication: OSTEOPOROSIS
     Dosage: 20 UG, DAILY (1/D)

REACTIONS (9)
  - Psychomotor hyperactivity [Unknown]
  - Nausea [Unknown]
  - Dysgeusia [Unknown]
  - Arthralgia [Unknown]
  - Nervousness [Unknown]
  - Pain [Recovered/Resolved]
  - Muscle spasms [Unknown]
  - Paraesthesia oral [Unknown]
  - Hypersomnia [Unknown]
